FAERS Safety Report 18930545 (Version 1)
Quarter: 2021Q1

REPORT INFORMATION
  Report Type: Spontaneous
  Country: US (occurrence: US)
  Receive Date: 20210223
  Receipt Date: 20210223
  Transmission Date: 20210420
  Serious: Yes (Other)
  Sender: FDA-Public Use
  Company Number: US-BAYER-2021-074907

PATIENT
  Age: 65 Year
  Sex: Female
  Weight: 59 kg

DRUGS (3)
  1. CORICIDIN HBP MAXIMUM STRENGTH COLD, COUGH AND FLU [Suspect]
     Active Substance: ACETAMINOPHEN\DEXTROMETHORPHAN HYDROBROMIDE\GUAIFENESIN
     Indication: ALLERGIC RESPIRATORY SYMPTOM
     Route: 048
     Dates: start: 20210217
  2. CORICIDIN HBP MAXIMUM STRENGTH COLD, COUGH AND FLU [Suspect]
     Active Substance: ACETAMINOPHEN\DEXTROMETHORPHAN HYDROBROMIDE\GUAIFENESIN
     Indication: NASOPHARYNGITIS
  3. CORICIDIN HBP COLD AND FLU [Concomitant]
     Active Substance: ACETAMINOPHEN\CHLORPHENIRAMINE MALEATE

REACTIONS (4)
  - Foreign body in throat [Unknown]
  - Choking [Unknown]
  - Regurgitation [Unknown]
  - Blood pressure increased [None]

NARRATIVE: CASE EVENT DATE: 20210217
